FAERS Safety Report 8697059 (Version 3)
Quarter: 2012Q4

REPORT INFORMATION
  Report Type: 
  Country: HU (occurrence: HU)
  Receive Date: 20120801
  Receipt Date: 20121030
  Transmission Date: 20130627
  Serious: Yes (Other)
  Sender: FDA-Public Use
  Company Number: HU-ELI_LILLY_AND_COMPANY-HU201207007111

PATIENT
  Age: 13 Year
  Sex: Female

DRUGS (2)
  1. HUMATROPE [Suspect]
     Indication: GROWTH HORMONE DEFICIENCY
     Dosage: UNK UNK, unknown
     Route: 058
     Dates: start: 200909, end: 20101025
  2. HUMATROPE [Suspect]
     Dosage: UNK, unknown
     Dates: start: 201204

REACTIONS (3)
  - Hypercorticoidism [Unknown]
  - Growth retardation [Unknown]
  - Secondary sexual characteristics absence [Unknown]
